FAERS Safety Report 7764721 (Version 3)
Quarter: 2013Q2

REPORT INFORMATION
  Report Type: Spontaneous
  Country: GB (occurrence: None)
  Receive Date: 20101221
  Receipt Date: 20130422
  Transmission Date: 20140414
  Serious: Yes (Other)
  Sender: FDA-Public Use
  Company Number: GB-021496

PATIENT
  Age: 82 Year
  Sex: Male

DRUGS (2)
  1. CHLORAMBUCIL [Suspect]
     Indication: CHRONIC LYMPHOCYTIC LEUKAEMIA
     Dosage: 10 MGM2 DAYS 107 EVERY 28 DAYS
     Route: 048
     Dates: start: 20100924
  2. ARZERRA [Suspect]
     Indication: CHRONIC LYMPHOCYTIC LEUKAEMIA
     Dosage: 300MG AT DAY 1, 1000MG AT DAY 8, 1000MG EVERY 28 DAYS, INTRAVENOUS (NOT OTHERWISE SPECIFIED)?
     Route: 042
     Dates: start: 20100923

REACTIONS (2)
  - COGNITIVE DISORDER [None]
  - Cognitive disorder [None]
